FAERS Safety Report 10453775 (Version 1)
Quarter: 2014Q3

REPORT INFORMATION
  Report Type: Spontaneous
  Country: US (occurrence: US)
  Receive Date: 20140915
  Receipt Date: 20140915
  Transmission Date: 20150326
  Serious: Yes (Other)
  Sender: FDA-Public Use
  Company Number: US-TEVA-509168USA

PATIENT
  Age: 29 Year
  Sex: Female
  Weight: 89.44 kg

DRUGS (1)
  1. PLAN B ONE-STEP [Suspect]
     Active Substance: LEVONORGESTREL
     Indication: POST COITAL CONTRACEPTION
     Dosage: 1.5 MILLIGRAM DAILY;
     Route: 048
     Dates: start: 201211, end: 201211

REACTIONS (5)
  - Maternal exposure before pregnancy [Recovered/Resolved]
  - Metrorrhagia [Recovered/Resolved]
  - Live birth [Recovered/Resolved]
  - Nausea [Recovered/Resolved]
  - Pregnancy after post coital contraception [Recovered/Resolved]

NARRATIVE: CASE EVENT DATE: 20121123
